FAERS Safety Report 10245092 (Version 1)
Quarter: 2014Q2

REPORT INFORMATION
  Report Type: Spontaneous
  Country: US (occurrence: US)
  Receive Date: 20140618
  Receipt Date: 20140618
  Transmission Date: 20141212
  Serious: No
  Sender: FDA-Public Use
  Company Number: US-GALDERMA-US14001240

PATIENT
  Sex: Female

DRUGS (2)
  1. MIRVASO (BRIMONIDINE) TOPICAL GEL, 0.33% [Suspect]
     Indication: ROSACEA
     Dosage: 0.33%
     Route: 061
  2. CETAPHIL CLEANSER [Concomitant]
     Indication: THERAPEUTIC SKIN CARE TOPICAL
     Route: 061

REACTIONS (13)
  - Condition aggravated [Unknown]
  - Pallor [Unknown]
  - Feeling abnormal [Unknown]
  - Swelling face [Unknown]
  - Seborrhoea [Unknown]
  - Rash papular [Unknown]
  - Fatigue [Unknown]
  - Skin discomfort [Unknown]
  - Rosacea [Unknown]
  - Paraesthesia [Unknown]
  - Skin burning sensation [Unknown]
  - Erythema [Unknown]
  - Drug effect decreased [Unknown]
